FAERS Safety Report 6302867-9 (Version None)
Quarter: 2009Q3

REPORT INFORMATION
  Report Type: 
  Country: None (occurrence: None)
  Receive Date: 20090810
  Receipt Date: 20090730
  Transmission Date: 20100115
  Serious: Yes (Hospitalization)
  Sender: FDA-Public Use
  Company Number: US-ELI_LILLY_AND_COMPANY-US200907002189

PATIENT
  Sex: Female

DRUGS (9)
  1. FORTEO [Suspect]
     Indication: OSTEOPOROSIS
     Dosage: 20 UG, DAILY (1/D)
     Dates: start: 20090501
  2. LIPITOR [Concomitant]
  3. ATENOLOL [Concomitant]
  4. SERTRALINE [Concomitant]
  5. VITAMIN D [Concomitant]
  6. VITAMIN B COMPLEX CAP [Concomitant]
  7. CALTRATE + D [Concomitant]
     Dosage: 600 MG, DAILY (1/D)
  8. OCTOVIT [Concomitant]
  9. SODIUM CITRATE [Concomitant]
     Indication: ANTICOAGULANT THERAPY

REACTIONS (11)
  - ACCIDENT AT HOME [None]
  - ARTHRALGIA [None]
  - BONE PAIN [None]
  - FATIGUE [None]
  - LIMB INJURY [None]
  - MEMORY IMPAIRMENT [None]
  - OEDEMA PERIPHERAL [None]
  - PAIN IN EXTREMITY [None]
  - SKIN DISCOLOURATION [None]
  - SLEEP DISORDER [None]
  - WOUND [None]
